FAERS Safety Report 25635014 (Version 3)
Quarter: 2025Q4

REPORT INFORMATION
  Report Type: Spontaneous
  Country: EU (occurrence: EU)
  Receive Date: 20250801
  Receipt Date: 20251120
  Transmission Date: 20260117
  Serious: Yes (Hospitalization)
  Sender: NOVARTIS
  Company Number: EU-002147023-NVSC2025DE119767

PATIENT
  Sex: Male

DRUGS (11)
  1. EXFORGE HCT [Suspect]
     Active Substance: AMLODIPINE BESYLATE\HYDROCHLOROTHIAZIDE\VALSARTAN
     Indication: Product used for unknown indication
     Dosage: UNK, QD
     Route: 048
  2. BISOPROLOL FUMARATE [Suspect]
     Active Substance: BISOPROLOL FUMARATE
     Indication: Product used for unknown indication
     Dosage: UNK, BID
     Route: 048
  3. ASPIRIN [Concomitant]
     Active Substance: ASPIRIN
     Indication: Product used for unknown indication
     Dosage: UNK, QD (100)
     Route: 048
  4. XARELTO [Concomitant]
     Active Substance: RIVAROXABAN
     Indication: Product used for unknown indication
     Dosage: .5 MG, BID
     Route: 048
  5. Moxonidin 1 A Pharm [Concomitant]
     Indication: Product used for unknown indication
     Dosage: 0.2 MG, (2-1-1)
     Route: 048
  6. Torem rr [Concomitant]
     Indication: Product used for unknown indication
     Dosage: UNK, QD
     Route: 048
  7. ROSUVASTATIN [Concomitant]
     Active Substance: ROSUVASTATIN
     Indication: Product used for unknown indication
     Dosage: UNK, QD
     Route: 048
  8. ERLEADA [Concomitant]
     Active Substance: APALUTAMIDE
     Indication: Product used for unknown indication
     Dosage: 60 MG (4-0-0)
     Route: 048
  9. LEUPROLIDE ACETATE [Concomitant]
     Active Substance: LEUPROLIDE ACETATE
     Indication: Prostate cancer
     Dosage: UNK
     Route: 065
  10. APALUTAMIDE [Concomitant]
     Active Substance: APALUTAMIDE
     Indication: Prostate cancer
     Dosage: 240 MG
     Route: 065
  11. HEPARIN [Concomitant]
     Active Substance: HEPARIN SODIUM
     Indication: Prostate cancer
     Dosage: UNK
     Route: 065
     Dates: start: 202507

REACTIONS (7)
  - Coronary artery disease [Recovered/Resolved]
  - Disease progression [Recovered/Resolved]
  - Coronary artery stenosis [Recovered/Resolved]
  - Angina pectoris [Recovered/Resolved]
  - Lipoprotein (a) increased [Unknown]
  - Hypercholesterolaemia [Unknown]
  - Arteriosclerosis [Unknown]
